FAERS Safety Report 21089555 (Version 2)
Quarter: 2023Q4

REPORT INFORMATION
  Report Type: Report from Study
  Country: FR (occurrence: FR)
  Receive Date: 20220715
  Receipt Date: 20231124
  Transmission Date: 20240109
  Serious: Yes (Hospitalization)
  Sender: FDA-Public Use
  Company Number: FR-AMGEN-FRACT2022116878

PATIENT
  Age: 40 Year
  Sex: Female
  Weight: 96 kg

DRUGS (6)
  1. PANITUMUMAB [Suspect]
     Active Substance: PANITUMUMAB
     Indication: Colorectal cancer
     Dosage: 560 MILLIGRAM; TOTAL DOSE: 4520 MG/ LAST ADMINISTRATION: 30/MAY/2022
     Route: 042
     Dates: start: 20220126
  2. OXALIPLATIN [Suspect]
     Active Substance: OXALIPLATIN
     Indication: Colorectal cancer
     Dosage: 120 MILLIGRAM; TOTAL DOSE: 4520 MG/ LAST ADMINISTRATION: 30/MAY/2022
     Route: 042
     Dates: start: 20220126
  3. FLUOROURACIL [Suspect]
     Active Substance: FLUOROURACIL
     Indication: Colorectal cancer
     Dosage: IV BOLUS, 3650 MILLIGRAM;LAST DOSE BEFORE EVENT: 800 MG; TOTAL DOSE: 7175 MG; LAST ADMINISTRATION: 3
     Route: 042
     Dates: start: 20220126
  4. FLUOROURACIL [Suspect]
     Active Substance: FLUOROURACIL
     Dosage: IV CONTINUOUS, TOTAL DOSE: 39500 MG/ LAST ADMINISTRATION: 30/MAY/2022
     Route: 042
  5. IRINOTECAN [Suspect]
     Active Substance: IRINOTECAN
     Indication: Colorectal cancer
     Dosage: 240 MILLIGRAM; TOTAL DOSE: 2450 MG/ LAST ADMINISTRATION: 30/MAY/2022
     Route: 042
     Dates: start: 20220126
  6. LEVOLEUCOVORIN CALCIUM [Suspect]
     Active Substance: LEVOLEUCOVORIN CALCIUM
     Indication: Colorectal cancer
     Dosage: 400 MILLIGRAM; TOTAL DOSE: 3580 MG/ LAST ADMINISTRATION: 30/MAY/2022
     Route: 042
     Dates: start: 20220126

REACTIONS (1)
  - Device related infection [Recovered/Resolved]

NARRATIVE: CASE EVENT DATE: 20220610
